FAERS Safety Report 13652817 (Version 1)
Quarter: 2017Q2

REPORT INFORMATION
  Report Type: Spontaneous
  Country: US (occurrence: US)
  Receive Date: 20170614
  Receipt Date: 20170614
  Transmission Date: 20170830
  Serious: No
  Sender: FDA-Public Use
  Company Number: US-ROCHE-1394975

PATIENT
  Sex: Male
  Weight: 80.36 kg

DRUGS (1)
  1. XELODA [Suspect]
     Active Substance: CAPECITABINE
     Indication: COLON CANCER
     Dosage: 14 DAYS ON 7 DAYS OFF
     Route: 048
     Dates: start: 20140312

REACTIONS (1)
  - Asthenia [Not Recovered/Not Resolved]
